FAERS Safety Report 14665280 (Version 28)
Quarter: 2019Q4

REPORT INFORMATION
  Report Type: Spontaneous
  Country: CA (occurrence: CA)
  Receive Date: 20180321
  Receipt Date: 20191213
  Transmission Date: 20200122
  Serious: Yes (Other)
  Sender: FDA-Public Use
  Company Number: CA-CELLTRION INC.-2018CA017372

PATIENT

DRUGS (41)
  1. INFLECTRA [Suspect]
     Active Substance: INFLIXIMAB-DYYB
     Dosage: 500MG EVERY 4 WEEKS
     Route: 042
     Dates: start: 20180412
  2. INFLECTRA [Suspect]
     Active Substance: INFLIXIMAB-DYYB
     Dosage: 500MG EVERY 4 WEEKS
     Route: 042
     Dates: start: 20190812
  3. TYLENOL ARTHRITIS PAIN [Concomitant]
     Active Substance: ACETAMINOPHEN
     Dosage: UNK
     Route: 065
     Dates: start: 20190107
  4. INFLECTRA [Suspect]
     Active Substance: INFLIXIMAB-DYYB
     Dosage: 500 MG, EVERY 4 WEEKS
     Route: 042
     Dates: start: 20170711, end: 20180105
  5. INFLECTRA [Suspect]
     Active Substance: INFLIXIMAB-DYYB
     Dosage: 700 MG ONCE THEN 500MG EVERY 4 WEEKS,
     Route: 042
     Dates: start: 20180510, end: 20180510
  6. INFLECTRA [Suspect]
     Active Substance: INFLIXIMAB-DYYB
     Dosage: 700MG ONCE THEN 500MG EVERY 4 WEEKS,
     Route: 042
     Dates: start: 20180830
  7. INFLECTRA [Suspect]
     Active Substance: INFLIXIMAB-DYYB
     Dosage: 500MG EVERY 4 WEEKS
     Route: 042
     Dates: start: 20191008
  8. INFLECTRA [Suspect]
     Active Substance: INFLIXIMAB-DYYB
     Dosage: 700MG ONCE THEN 500MG EVERY 4 WEEKS
     Route: 042
     Dates: start: 20181025
  9. INFLECTRA [Suspect]
     Active Substance: INFLIXIMAB-DYYB
     Dosage: 500MG EVERY 4 WEEKS
     Route: 042
     Dates: start: 20181217
  10. INFLECTRA [Suspect]
     Active Substance: INFLIXIMAB-DYYB
     Dosage: 500MG EVERY 4 WEEKS
     Route: 042
     Dates: start: 20190308
  11. SEROQUEL [Concomitant]
     Active Substance: QUETIAPINE FUMARATE
     Dosage: 25 MG (1 TABLET) THREE TIMES A DAY AS NEEDED
     Route: 048
  12. CLONAZEPAM. [Concomitant]
     Active Substance: CLONAZEPAM
     Dosage: 1 DF, 3X/DAY (1 TAB TID)
     Route: 065
  13. BENTYLOL [Concomitant]
     Active Substance: DICYCLOMINE HYDROCHLORIDE
     Route: 065
  14. INFLECTRA [Suspect]
     Active Substance: INFLIXIMAB-DYYB
     Dosage: 500 MG, EVERY 4 WEEKS
     Route: 042
     Dates: start: 20170711, end: 20180105
  15. INFLECTRA [Suspect]
     Active Substance: INFLIXIMAB-DYYB
     Dosage: 500MG EVERY 4 WEEKS
     Route: 042
     Dates: start: 20191203
  16. CLONAZEPAM. [Concomitant]
     Active Substance: CLONAZEPAM
     Dosage: UNK
     Route: 065
  17. INFLECTRA [Suspect]
     Active Substance: INFLIXIMAB-DYYB
     Dosage: 500 MG, THEN EVERY 8 WEEKS
     Route: 042
     Dates: start: 20180309
  18. INFLECTRA [Suspect]
     Active Substance: INFLIXIMAB-DYYB
     Dosage: 5 MG/KG, THEN EVERY 8 WEEKS
     Route: 042
  19. INFLECTRA [Suspect]
     Active Substance: INFLIXIMAB-DYYB
     Dosage: 500MG EVERY 4 WEEKS
     Route: 042
     Dates: start: 20190114
  20. INFLECTRA [Suspect]
     Active Substance: INFLIXIMAB-DYYB
     Dosage: 500MG EVERY 4 WEEKS
     Route: 042
     Dates: start: 20190715
  21. INFLECTRA [Suspect]
     Active Substance: INFLIXIMAB-DYYB
     Dosage: 500MG EVERY 4 WEEKS
     Route: 042
     Dates: start: 20190909
  22. SEROQUEL [Concomitant]
     Active Substance: QUETIAPINE FUMARATE
     Dosage: 50 MG ONCE DAILY (BED TIME) AS NEEDED
     Route: 048
  23. INFLECTRA [Suspect]
     Active Substance: INFLIXIMAB-DYYB
     Dosage: 700MG ONCE THEN 500MG EVERY 4 WEEKS
     Route: 042
     Dates: start: 20180705
  24. INFLECTRA [Suspect]
     Active Substance: INFLIXIMAB-DYYB
     Dosage: 700MG ONCE THEN 500MG EVERY 4 WEEKS
     Route: 042
     Dates: start: 20180730
  25. INFLECTRA [Suspect]
     Active Substance: INFLIXIMAB-DYYB
     Dosage: 500MG EVERY 4 WEEKS
     Route: 042
     Dates: start: 20190412
  26. INFLECTRA [Suspect]
     Active Substance: INFLIXIMAB-DYYB
     Dosage: 500MG EVERY 4 WEEKS
     Route: 042
     Dates: start: 20190604
  27. INFLECTRA [Suspect]
     Active Substance: INFLIXIMAB-DYYB
     Dosage: 700MG ONCE THEN 500MG EVERY 4 WEEKS
     Route: 042
     Dates: start: 20181119
  28. INFLECTRA [Suspect]
     Active Substance: INFLIXIMAB-DYYB
     Dosage: 500MG EVERY 4 WEEKS
     Route: 042
     Dates: start: 20190408
  29. SEROQUEL [Concomitant]
     Active Substance: QUETIAPINE FUMARATE
     Dosage: UNKNOWN DOSE AS IT HAS BEEN DECREASED
     Route: 048
  30. PAROXETINE. [Concomitant]
     Active Substance: PAROXETINE
     Dosage: 20 MG, 1X/DAY
     Route: 048
  31. CORTISONE [Concomitant]
     Active Substance: CORTISONE
     Indication: GASTROINTESTINAL INFLAMMATION
     Dosage: UNK
     Route: 065
     Dates: start: 201805
  32. DILAUDID [Concomitant]
     Active Substance: HYDROMORPHONE HYDROCHLORIDE
     Dosage: UNK
     Route: 058
  33. INFLECTRA [Suspect]
     Active Substance: INFLIXIMAB-DYYB
     Indication: COLITIS ULCERATIVE
     Dosage: 900 MG, EVERY 0, 2, 6 WEEKS, THEN EVERY 8 WEEKS
     Route: 042
     Dates: start: 20170406, end: 20170518
  34. INFLECTRA [Suspect]
     Active Substance: INFLIXIMAB-DYYB
     Dosage: 500 MG, EVERY 4 WEEKS
     Route: 042
     Dates: start: 20170711, end: 20180309
  35. INFLECTRA [Suspect]
     Active Substance: INFLIXIMAB-DYYB
     Dosage: 500 MG, THEN EVERY 8 WEEKS
     Route: 042
     Dates: start: 20180105
  36. INFLECTRA [Suspect]
     Active Substance: INFLIXIMAB-DYYB
     Dosage: 485 MG, UNK
     Route: 042
     Dates: start: 20180412
  37. INFLECTRA [Suspect]
     Active Substance: INFLIXIMAB-DYYB
     Dosage: 700MG ONCE THEN 500MG EVERY 4 WEEKS, CYCLIC
     Route: 042
     Dates: start: 20180606
  38. INFLECTRA [Suspect]
     Active Substance: INFLIXIMAB-DYYB
     Dosage: 700MG ONCE THEN 500MG EVERY 4 WEEKS,
     Route: 042
     Dates: start: 20180925
  39. INFLECTRA [Suspect]
     Active Substance: INFLIXIMAB-DYYB
     Dosage: 500MG EVERY 4 WEEKS
     Route: 042
     Dates: start: 20190214
  40. INFLECTRA [Suspect]
     Active Substance: INFLIXIMAB-DYYB
     Dosage: 500MG EVERY 4 WEEKS
     Route: 042
     Dates: start: 20190506
  41. INFLECTRA [Suspect]
     Active Substance: INFLIXIMAB-DYYB
     Dosage: 500MG EVERY 4 WEEKS
     Route: 042
     Dates: start: 20191105

REACTIONS (27)
  - Wound [Recovered/Resolved]
  - Wound complication [Recovered/Resolved]
  - Arthralgia [Unknown]
  - Eye pruritus [Unknown]
  - Bronchitis [Recovered/Resolved]
  - Oropharyngeal pain [Unknown]
  - Aphonia [Recovered/Resolved]
  - Erythema [Unknown]
  - Inappropriate schedule of product administration [Unknown]
  - Intentional product use issue [Unknown]
  - Condition aggravated [Not Recovered/Not Resolved]
  - Wound infection [Recovered/Resolved]
  - Drug ineffective [Unknown]
  - Somnolence [Unknown]
  - Incorrect dose administered [Unknown]
  - Ocular hyperaemia [Unknown]
  - Heart rate irregular [Unknown]
  - Pharyngitis [Unknown]
  - Blood pressure fluctuation [Not Recovered/Not Resolved]
  - Distractibility [Unknown]
  - Fatigue [Not Recovered/Not Resolved]
  - Amnesia [Unknown]
  - Burns first degree [Unknown]
  - Off label use [Unknown]
  - Erythema [Recovering/Resolving]
  - Depressed mood [Not Recovered/Not Resolved]
  - Pruritus [Recovering/Resolving]

NARRATIVE: CASE EVENT DATE: 2018
